FAERS Safety Report 16387363 (Version 5)
Quarter: 2019Q4

REPORT INFORMATION
  Report Type: Spontaneous
  Country: US (occurrence: US)
  Receive Date: 20190604
  Receipt Date: 20191029
  Transmission Date: 20200122
  Serious: Yes (Other)
  Sender: FDA-Public Use
  Company Number: US-BAYER-2019-108000

PATIENT
  Age: 31 Year
  Sex: Female
  Weight: 112.93 kg

DRUGS (6)
  1. IBUPROFEN. [Concomitant]
     Active Substance: IBUPROFEN
     Dosage: 200 MG
     Route: 048
  2. ATIVAN [Concomitant]
     Active Substance: LORAZEPAM
     Dosage: 1 MG
     Route: 048
  3. MIRENA [Suspect]
     Active Substance: LEVONORGESTREL
     Indication: CONTRACEPTION
  4. CELEXA [CELECOXIB] [Concomitant]
     Active Substance: CELECOXIB
     Dosage: 40 MG
  5. MIRENA [Suspect]
     Active Substance: LEVONORGESTREL
     Indication: CONTRACEPTION
     Dosage: 20 MCG/24HR, CONT
     Route: 015
     Dates: start: 20190423, end: 20190503
  6. DICLOFENAC SODIUM. [Concomitant]
     Active Substance: DICLOFENAC SODIUM
     Dosage: 75 MG
     Route: 048

REACTIONS (7)
  - Vaginal discharge [None]
  - Device expulsion [Recovered/Resolved]
  - Medical device pain [Recovered/Resolved]
  - Cervix inflammation [None]
  - Medical device discomfort [Recovered/Resolved]
  - Haemorrhagic ovarian cyst [None]
  - Procedural pain [Recovered/Resolved]

NARRATIVE: CASE EVENT DATE: 20190423
